FAERS Safety Report 5142547-9 (Version None)
Quarter: 2006Q4

REPORT INFORMATION
  Report Type: 
  Country: None (occurrence: None)
  Receive Date: 20061027
  Receipt Date: 20061016
  Transmission Date: 20070319
  Serious: Yes (Hospitalization, Other)
  Sender: FDA-Public Use
  Company Number: HQWYE140216OCT06

PATIENT
  Age: 58 Year
  Sex: Female

DRUGS (12)
  1. PREMPRO [Suspect]
     Indication: MENOPAUSE
     Dosage: 1 TABLET 1X PER 1 DAY,
     Dates: end: 20060101
  2. PREMPRO [Suspect]
     Indication: OSTEOPOROSIS
     Dosage: 1 TABLET 1X PER 1 DAY,
     Dates: end: 20060101
  3. PREMPRO [Suspect]
     Indication: PROPHYLAXIS
     Dosage: 1 TABLET 1X PER 1 DAY,
     Dates: end: 20060101
  4. PANITUMUMAB (PANITUMUMAB,) [Suspect]
     Indication: COLORECTAL CANCER
     Dosage: 455 MG 2X PER 1 WK, INTRAVENOUS
     Route: 042
     Dates: start: 20060710
  5. OXALIPLATIN [Concomitant]
  6. LEUCOVORIN CALCIUM [Concomitant]
  7. FLUOROURACIL [Concomitant]
  8. GRANISETRON (GRANISETRON) [Concomitant]
  9. CIPROFLOXACIN HYDROCHLORIDE (CIPROFLOXACIN HYDROCHLORIDE) [Concomitant]
  10. CETIRIZINE HCL [Concomitant]
  11. MULTIVITAMINS, PLAIN (MULTIVITAMINS, PLAIN) [Concomitant]
  12. NEULASTA [Concomitant]

REACTIONS (2)
  - FACIAL PALSY [None]
  - TRANSIENT ISCHAEMIC ATTACK [None]
